FAERS Safety Report 8097280-0 (Version None)
Quarter: 2012Q1

REPORT INFORMATION
  Report Type: 
  Country: None (occurrence: None)
  Receive Date: 20120128
  Receipt Date: 20110818
  Transmission Date: 20120608
  Serious: No
  Sender: FDA-Public Use
  Company Number: US-ABBOTT-11P-163-0835140-00

PATIENT
  Sex: Female
  Weight: 49.94 kg

DRUGS (6)
  1. HUMIRA [Suspect]
     Indication: AUTOIMMUNE DISORDER
  2. AZOPT [Concomitant]
     Indication: UVEITIS
     Route: 047
  3. HUMIRA [Suspect]
     Indication: UVEITIS
     Route: 058
     Dates: start: 20110422
  4. SOLU-MEDROL [Concomitant]
     Indication: PREMEDICATION
     Route: 058
     Dates: start: 20090101
  5. COMBIGAN [Concomitant]
     Indication: UVEITIS
     Route: 047
  6. IMMUNE GLOBULIN IV NOS [Concomitant]
     Indication: UVEITIS
     Route: 042
     Dates: start: 20090101

REACTIONS (8)
  - HAEMOGLOBIN DECREASED [None]
  - MENSTRUATION DELAYED [None]
  - HAEMATOCRIT DECREASED [None]
  - WHITE BLOOD CELL COUNT DECREASED [None]
  - EPISTAXIS [None]
  - BLOOD UREA DECREASED [None]
  - RED BLOOD CELL COUNT DECREASED [None]
  - FATIGUE [None]
